FAERS Safety Report 25445530 (Version 1)
Quarter: 2025Q2

REPORT INFORMATION
  Report Type: Spontaneous
  Country: DE (occurrence: None)
  Receive Date: 20250617
  Receipt Date: 20250617
  Transmission Date: 20250716
  Serious: Yes (Hospitalization, Disabling, Other)
  Sender: FDA-CTU
  Company Number: None

PATIENT
  Sex: Male

DRUGS (3)
  1. ESCITALOPRAM [Suspect]
     Active Substance: ESCITALOPRAM OXALATE
     Indication: Sleep disorder
     Route: 048
     Dates: start: 20201220, end: 20210516
  2. ESCITALOPRAM [Suspect]
     Active Substance: ESCITALOPRAM OXALATE
     Indication: Panic attack
  3. ESCITALOPRAM [Suspect]
     Active Substance: ESCITALOPRAM OXALATE
     Indication: Panic attack

REACTIONS (6)
  - Withdrawal syndrome [None]
  - Akathisia [None]
  - Tachyphrenia [None]
  - Insomnia [None]
  - Fear [None]
  - Fatigue [None]

NARRATIVE: CASE EVENT DATE: 20201221
